FAERS Safety Report 7433472-9 (Version None)
Quarter: 2011Q2

REPORT INFORMATION
  Report Type: 
  Country: None (occurrence: None)
  Receive Date: 20110422
  Receipt Date: 20110420
  Transmission Date: 20111010
  Serious: Yes (Other)
  Sender: FDA-Public Use
  Company Number: US-AMGEN-USASP2010008626

PATIENT
  Age: 71 Year
  Sex: Male
  Weight: 108 kg

DRUGS (8)
  1. AVANDAMET [Concomitant]
     Dosage: UNK
     Dates: start: 20061010
  2. NPLATE [Suspect]
     Indication: IDIOPATHIC THROMBOCYTOPENIC PURPURA
     Dosage: 10 A?G/KG, QWK
     Route: 058
     Dates: start: 20091231, end: 20100803
  3. NPLATE [Suspect]
     Indication: THROMBOCYTOPENIA
  4. LIPITOR [Concomitant]
     Dosage: UNK
     Dates: start: 20070626
  5. IMMUNOGLOBULINS [Concomitant]
  6. ISOSORBIDE MONONITRATE [Concomitant]
     Dosage: UNK
     Dates: start: 20070411
  7. ALTACE [Concomitant]
     Dosage: UNK
     Dates: start: 20060719
  8. TOPROL-XL [Concomitant]
     Dosage: UNK
     Dates: start: 20060719

REACTIONS (1)
  - THROMBOCYTOPENIA [None]
